FAERS Safety Report 5255542-6 (Version None)
Quarter: 2007Q1

REPORT INFORMATION
  Report Type: 
  Country: None (occurrence: None)
  Receive Date: 20070305
  Receipt Date: 20070301
  Transmission Date: 20070707
  Serious: Yes (Hospitalization)
  Sender: FDA-Public Use
  Company Number: FR-BRISTOL-MYERS SQUIBB COMPANY-13679410

PATIENT
  Age: 37 Year
  Sex: Female
  Weight: 58 kg

DRUGS (5)
  1. KENACORT [Suspect]
     Indication: POLYARTHRITIS
     Dosage: KENACORT RETARD 80MG/2ML
     Route: 014
  2. XYLOCAINE [Concomitant]
     Route: 014
  3. PROPOFOL [Concomitant]
  4. MYOLASTAN [Concomitant]
  5. KETOPROFEN [Concomitant]

REACTIONS (1)
  - ANAPHYLACTIC REACTION [None]
